FAERS Safety Report 13646484 (Version 1)
Quarter: 2017Q2

REPORT INFORMATION
  Report Type: Spontaneous
  Country: US (occurrence: US)
  Receive Date: 20170612
  Receipt Date: 20170612
  Transmission Date: 20170830
  Serious: Yes (Life-Threatening)
  Sender: FDA-Public Use
  Company Number: None

PATIENT
  Age: 42 Year
  Sex: Female

DRUGS (20)
  1. TOPIRAMATE. [Concomitant]
     Active Substance: TOPIRAMATE
  2. OMEPRAZOLE. [Concomitant]
     Active Substance: OMEPRAZOLE
  3. PROCHLORPERAZINE. [Concomitant]
     Active Substance: PROCHLORPERAZINE
  4. OXYCODONE [Concomitant]
     Active Substance: OXYCODONE
  5. ATENOLOL. [Concomitant]
     Active Substance: ATENOLOL
  6. DULOXETINE. [Concomitant]
     Active Substance: DULOXETINE
  7. ACETAMINOPHEN. [Concomitant]
     Active Substance: ACETAMINOPHEN
  8. METFORMIN [Concomitant]
     Active Substance: METFORMIN HYDROCHLORIDE
  9. LEVOCETIRIZINE [Concomitant]
     Active Substance: LEVOCETIRIZINE
  10. LIDOCAINE. [Concomitant]
     Active Substance: LIDOCAINE
  11. TRINTELLIX [Concomitant]
     Active Substance: VORTIOXETINE HYDROBROMIDE
  12. XTAMPZA [Suspect]
     Active Substance: OXYCODONE
     Indication: BACK PAIN
     Route: 048
     Dates: start: 20170425, end: 20170609
  13. ROSUVASTATIN. [Concomitant]
     Active Substance: ROSUVASTATIN
  14. MONTELUKAST [Concomitant]
     Active Substance: MONTELUKAST SODIUM
  15. HUMULIN R [Concomitant]
     Active Substance: INSULIN HUMAN
  16. IBUPROFEN. [Concomitant]
     Active Substance: IBUPROFEN
  17. ALPRAZOLAM. [Concomitant]
     Active Substance: ALPRAZOLAM
  18. LISINOPRIL. [Concomitant]
     Active Substance: LISINOPRIL
  19. LYRICA [Concomitant]
     Active Substance: PREGABALIN
  20. PROAIR HFA [Concomitant]
     Active Substance: ALBUTEROL SULFATE

REACTIONS (1)
  - Blood glucose increased [None]

NARRATIVE: CASE EVENT DATE: 20170609
